FAERS Safety Report 18763073 (Version 1)
Quarter: 2021Q1

REPORT INFORMATION
  Report Type: Spontaneous
  Country: US (occurrence: US)
  Receive Date: 20210120
  Receipt Date: 20210120
  Transmission Date: 20210419
  Serious: Yes (Hospitalization)
  Sender: FDA-Public Use
  Company Number: None

PATIENT
  Age: 56 Year
  Sex: Female

DRUGS (5)
  1. ASPIRIN 81MG [Concomitant]
     Active Substance: ASPIRIN
  2. METOPROLOL ER 25MG [Concomitant]
  3. NITROGLYCERIN 0.4MG [Concomitant]
  4. PRALUENT [Suspect]
     Active Substance: ALIROCUMAB
     Indication: HYPERCHOLESTEROLAEMIA
     Dosage: ?          OTHER FREQUENCY:EVERY 2 WEEKS;?
     Route: 030
     Dates: start: 20200706, end: 20210101
  5. ISOSORBIDE MONONITRATE 60MG [Concomitant]

REACTIONS (1)
  - Drug hypersensitivity [None]

NARRATIVE: CASE EVENT DATE: 20201229
